FAERS Safety Report 18163074 (Version 1)
Quarter: 2020Q3

REPORT INFORMATION
  Report Type: Spontaneous
  Country: US (occurrence: US)
  Receive Date: 20200818
  Receipt Date: 20200818
  Transmission Date: 20201103
  Serious: No
  Sender: FDA-Public Use
  Company Number: None

PATIENT
  Age: 62 Year
  Sex: Female

DRUGS (8)
  1. MAGNESIUM CITRATE. [Concomitant]
     Active Substance: MAGNESIUM CITRATE
  2. BCOMPLEX [Concomitant]
  3. XYZAL [Concomitant]
     Active Substance: LEVOCETIRIZINE DIHYDROCHLORIDE
  4. TUMERIC [Concomitant]
     Active Substance: HERBALS\TURMERIC
  5. AMITRIPTILINE [Concomitant]
  6. B2 [Concomitant]
  7. VALSARTAN. [Concomitant]
     Active Substance: VALSARTAN
  8. POLYMYXIN B SULFATE AND TRIMETHOPRIM OPHTHALMIC SOLUTION, USP [Suspect]
     Active Substance: POLYMYXIN B SULFATE\TRIMETHOPRIM SULFATE
     Indication: CONJUNCTIVITIS
     Route: 047
     Dates: start: 20200814, end: 20200817

REACTIONS (4)
  - Instillation site pain [None]
  - Instillation site swelling [None]
  - Instillation site pruritus [None]
  - Vision blurred [None]

NARRATIVE: CASE EVENT DATE: 20200816
